FAERS Safety Report 17884574 (Version 2)
Quarter: 2020Q2

REPORT INFORMATION
  Report Type: Spontaneous
  Country: US (occurrence: US)
  Receive Date: 20200611
  Receipt Date: 20200630
  Transmission Date: 20200714
  Serious: No
  Sender: FDA-Public Use
  Company Number: US-DSJP-DSU-2020-114647

PATIENT

DRUGS (1)
  1. ENHERTU [Suspect]
     Active Substance: FAM-TRASTUZUMAB DERUXTECAN-NXKI
     Indication: PRODUCT USED FOR UNKNOWN INDICATION
     Dosage: UNK
     Route: 065

REACTIONS (6)
  - Chills [Unknown]
  - Fatigue [Unknown]
  - Feeling abnormal [Unknown]
  - Nausea [Unknown]
  - Abdominal distension [Recovering/Resolving]
  - Pyrexia [Unknown]
